FAERS Safety Report 4836095-0 (Version None)
Quarter: 2005Q4

REPORT INFORMATION
  Report Type: 
  Country: None (occurrence: None)
  Receive Date: 20051123
  Receipt Date: 20051004
  Transmission Date: 20060501
  Serious: Yes (Hospitalization)
  Sender: FDA-Public Use
  Company Number: US-MERCK-0510USA02380

PATIENT
  Age: 48 Year
  Sex: Male
  Weight: 67 kg

DRUGS (2)
  1. VIOXX [Suspect]
     Indication: NECK PAIN
     Route: 048
     Dates: start: 19990101, end: 20030901
  2. VIOXX [Suspect]
     Indication: TENDONITIS
     Route: 048
     Dates: start: 19990101, end: 20030901

REACTIONS (4)
  - CEREBROVASCULAR ACCIDENT [None]
  - NECK INJURY [None]
  - OVERDOSE [None]
  - URINARY TRACT DISORDER [None]
